FAERS Safety Report 5168790-0 (Version None)
Quarter: 2006Q4

REPORT INFORMATION
  Report Type: 
  Country: None (occurrence: None)
  Receive Date: 20061211
  Receipt Date: 20061205
  Transmission Date: 20070319
  Serious: Yes (Hospitalization, Other)
  Sender: FDA-Public Use
  Company Number: CH-JNJFOC-20061200769

PATIENT
  Age: 61 Year
  Sex: Female

DRUGS (1)
  1. TAVANIC [Suspect]
     Indication: RESPIRATORY TRACT INFECTION BACTERIAL
     Route: 048

REACTIONS (1)
  - GLOSSOPHARYNGEAL NERVE PARALYSIS [None]
